FAERS Safety Report 11334815 (Version 1)
Quarter: 2015Q3

REPORT INFORMATION
  Report Type: Spontaneous
  Country: US (occurrence: None)
  Receive Date: 20150731
  Receipt Date: 20150731
  Transmission Date: 20151125
  Serious: Yes (Disabling, Other)
  Sender: FDA-Public Use
  Company Number: CO-PL-US-2015-134

PATIENT
  Age: 58 Year
  Sex: Female

DRUGS (3)
  1. FLUTICASONE PROPIONATE, SALMETEROL XINAFOATE [Concomitant]
  2. PLAQUENIL [Suspect]
     Active Substance: HYDROXYCHLOROQUINE SULFATE
     Dosage: (EXACT DATE NOT KNOWN)
     Route: 048
  3. MOMETASONE FUROATE. [Concomitant]
     Active Substance: MOMETASONE FUROATE

REACTIONS (4)
  - Optic atrophy [None]
  - Blood count abnormal [None]
  - Vision blurred [None]
  - Flatulence [None]
